FAERS Safety Report 14670782 (Version 7)
Quarter: 2019Q2

REPORT INFORMATION
  Report Type: Spontaneous
  Country: US (occurrence: US)
  Receive Date: 20180322
  Receipt Date: 20190507
  Transmission Date: 20190711
  Serious: Yes (Death, Hospitalization)
  Sender: FDA-Public Use
  Company Number: US-ACTELION-A-NJ2016-130789

PATIENT
  Age: 72 Year
  Sex: Male
  Weight: 67.12 kg

DRUGS (3)
  1. OPSUMIT [Suspect]
     Active Substance: MACITENTAN
     Indication: PULMONARY HYPERTENSION
     Dosage: 10 MG, QD
     Route: 048
  2. REMODULIN [Suspect]
     Active Substance: TREPROSTINIL
     Indication: PRODUCT USED FOR UNKNOWN INDICATION
     Route: 065
  3. SILDENAFIL. [Concomitant]
     Active Substance: SILDENAFIL

REACTIONS (14)
  - Infusion site pain [Unknown]
  - Pulmonary arterial hypertension [Fatal]
  - Oxygen saturation decreased [Unknown]
  - Infusion site swelling [Unknown]
  - Feeling abnormal [Unknown]
  - Dyspnoea [Unknown]
  - Infusion site irritation [Unknown]
  - Hypoxia [Unknown]
  - Herpes zoster [Unknown]
  - Weight decreased [Unknown]
  - Cardiac failure congestive [Unknown]
  - Head discomfort [Unknown]
  - Chest pain [Recovering/Resolving]
  - Infusion site erythema [Unknown]

NARRATIVE: CASE EVENT DATE: 20160121
